FAERS Safety Report 6644825-0 (Version None)
Quarter: 2010Q1

REPORT INFORMATION
  Report Type: 
  Country: None (occurrence: None)
  Receive Date: 20100322
  Receipt Date: 20100312
  Transmission Date: 20100710
  Serious: Yes (Other)
  Sender: FDA-Public Use
  Company Number: GXKR2010US03020

PATIENT
  Age: 45 Year
  Sex: Male
  Weight: 130 kg

DRUGS (4)
  1. TESTOSTERONE (NGX) [Suspect]
     Indication: MUSCLE BUILDING THERAPY
     Dosage: UNK
     Route: 065
  2. DECA-DURABOLIN [Suspect]
     Indication: MUSCLE BUILDING THERAPY
     Dosage: UNK
     Route: 065
  3. AMINO ACIDS NOS [Concomitant]
     Dosage: 300 G/DAY
     Route: 065
  4. PROTEINS NOS W/VITAMINS NOS [Concomitant]

REACTIONS (6)
  - ARTERIOSCLEROSIS [None]
  - DRUG ABUSE [None]
  - FOCAL SEGMENTAL GLOMERULOSCLEROSIS [None]
  - HYPERTENSION [None]
  - PROTEINURIA [None]
  - RENAL FAILURE [None]
